FAERS Safety Report 10567492 (Version 1)
Quarter: 2014Q4

REPORT INFORMATION
  Report Type: Spontaneous
  Country: US (occurrence: None)
  Receive Date: 20141105
  Receipt Date: 20141105
  Transmission Date: 20150529
  Serious: Yes (Disabling)
  Sender: FDA-Public Use
  Company Number: None

PATIENT
  Age: 38 Year
  Sex: Female
  Weight: 54.43 kg

DRUGS (1)
  1. COPPERTONE SPORT ACCUSPRAY SPF 15 [Suspect]
     Active Substance: AVOBENZONE\HOMOSALATE\OCTISALATE\OXYBENZONE
     Indication: EXPOSURE VIA INHALATION

REACTIONS (2)
  - Exposure via inhalation [None]
  - Pneumonitis chemical [None]

NARRATIVE: CASE EVENT DATE: 20140319
